FAERS Safety Report 5662499-2 (Version None)
Quarter: 2008Q1

REPORT INFORMATION
  Report Type: 
  Country: None (occurrence: None)
  Receive Date: 20080313
  Receipt Date: 20080304
  Transmission Date: 20080703
  Serious: Yes (Disabling, Other)
  Sender: FDA-Public Use
  Company Number: PHEH2008US02493

PATIENT
  Sex: Male

DRUGS (1)
  1. DIOVAN HCT [Suspect]
     Indication: HYPERTENSION
     Dosage: 160MG VAL/12.5MG VAL, QD

REACTIONS (7)
  - ACTIVITIES OF DAILY LIVING IMPAIRED [None]
  - AGITATION [None]
  - INSOMNIA [None]
  - PAIN [None]
  - PRURITUS [None]
  - RASH [None]
  - SKIN INFECTION [None]
